FAERS Safety Report 10798015 (Version 1)
Quarter: 2015Q1

REPORT INFORMATION
  Report Type: Spontaneous
  Country: US (occurrence: US)
  Receive Date: 20150216
  Receipt Date: 20150216
  Transmission Date: 20150721
  Serious: No
  Sender: FDA-Public Use
  Company Number: US-PFIZER INC-2015055776

PATIENT
  Age: 58 Year
  Sex: Male
  Weight: 73 kg

DRUGS (1)
  1. SUNITINIB MALATE [Suspect]
     Active Substance: SUNITINIB MALATE
     Indication: METASTATIC RENAL CELL CARCINOMA
     Dosage: UNK
     Dates: start: 201106, end: 201210

REACTIONS (2)
  - Metastatic renal cell carcinoma [Unknown]
  - Disease progression [Unknown]
